FAERS Safety Report 25681758 (Version 1)
Quarter: 2025Q3

REPORT INFORMATION
  Report Type: Spontaneous
  Country: US (occurrence: None)
  Receive Date: 20250814
  Receipt Date: 20250814
  Transmission Date: 20251021
  Serious: Yes (unspecified)
  Sender: FDA-CTU
  Company Number: None

PATIENT
  Age: 56 Year
  Sex: Female
  Weight: 83.46 kg

DRUGS (8)
  1. KISQALI [Suspect]
     Active Substance: RIBOCICLIB SUCCINATE
     Indication: Breast cancer
     Dosage: FREQUENCY : DAILY;?
     Route: 048
     Dates: start: 20250523, end: 20250731
  2. PREDNISONE [Suspect]
     Active Substance: PREDNISONE
  3. ANASTROZOLE [Concomitant]
     Active Substance: ANASTROZOLE
  4. FLONASE [Concomitant]
     Active Substance: FLUTICASONE PROPIONATE
  5. MAGNESIUM [Concomitant]
     Active Substance: MAGNESIUM
  6. OMEPRAZOLE [Concomitant]
     Active Substance: OMEPRAZOLE
  7. VENLAFAXINE [Concomitant]
     Active Substance: VENLAFAXINE HYDROCHLORIDE
  8. VITAMIN D [Concomitant]
     Active Substance: VITAMIN D NOS

REACTIONS (7)
  - Pneumonia [None]
  - Chest discomfort [None]
  - Cough [None]
  - Computerised tomogram thorax abnormal [None]
  - Pulmonary toxicity [None]
  - Pulmonary radiation injury [None]
  - Pneumonitis [None]

NARRATIVE: CASE EVENT DATE: 20250726
